FAERS Safety Report 18426877 (Version 1)
Quarter: 2020Q4

REPORT INFORMATION
  Report Type: Spontaneous
  Country: US (occurrence: US)
  Receive Date: 20201026
  Receipt Date: 20201026
  Transmission Date: 20210114
  Serious: No
  Sender: FDA-Public Use
  Company Number: None

PATIENT
  Age: 28 Year
  Sex: Female

DRUGS (1)
  1. SOFOSBUVIR AND VELPATASVIR [Suspect]
     Active Substance: SOFOSBUVIR\VELPATASVIR
     Dosage: ?          OTHER DOSE:400MG-100MG ;?
     Route: 048
     Dates: start: 202009

REACTIONS (4)
  - Dyspnoea [None]
  - Swollen tongue [None]
  - Lip swelling [None]
  - Therapy interrupted [None]

NARRATIVE: CASE EVENT DATE: 20201021
